FAERS Safety Report 6859506-8 (Version None)
Quarter: 2010Q3

REPORT INFORMATION
  Report Type: 
  Country: None (occurrence: None)
  Receive Date: 20100719
  Receipt Date: 20080303
  Transmission Date: 20110219
  Serious: No
  Sender: FDA-Public Use
  Company Number: US-PFIZER INC-2008020625

PATIENT
  Sex: Female
  Weight: 70.454 kg

DRUGS (4)
  1. CHANTIX [Suspect]
     Indication: SMOKING CESSATION THERAPY
     Dates: start: 20080107, end: 20080303
  2. PREMARIN [Concomitant]
  3. QUININE SULFATE [Concomitant]
  4. AMBIEN [Concomitant]

REACTIONS (5)
  - DRUG DOSE OMISSION [None]
  - GASTROENTERITIS VIRAL [None]
  - MALAISE [None]
  - NAUSEA [None]
  - VOMITING [None]
